FAERS Safety Report 9459968 (Version 1)
Quarter: 2013Q3

REPORT INFORMATION
  Report Type: Spontaneous
  Country: JP (occurrence: JP)
  Receive Date: 20130815
  Receipt Date: 20130815
  Transmission Date: 20140515
  Serious: Yes (Other)
  Sender: FDA-Public Use
  Company Number: PHHY2013JP072235

PATIENT
  Age: 60 Year
  Sex: Male

DRUGS (1)
  1. ZOMETA [Suspect]
     Indication: METASTASES TO BONE
     Dosage: 4 MG, PER ADMINISTRATION
     Route: 041
     Dates: start: 20130719

REACTIONS (5)
  - Terminal state [Unknown]
  - Lung neoplasm malignant [Unknown]
  - Metastases to bone [Unknown]
  - Malignant neoplasm progression [Unknown]
  - Hypocalcaemia [Recovered/Resolved]
